FAERS Safety Report 25889490 (Version 2)
Quarter: 2025Q4

REPORT INFORMATION
  Report Type: Spontaneous
  Country: EU (occurrence: EU)
  Receive Date: 20251007
  Receipt Date: 20251010
  Transmission Date: 20260117
  Serious: Yes (Hospitalization)
  Sender: ROCHE
  Company Number: None

PATIENT
  Age: 76 Year
  Sex: Female

DRUGS (5)
  1. RITUXIMAB [Suspect]
     Active Substance: RITUXIMAB
     Indication: Diffuse large B-cell lymphoma
     Dosage: R CHOP REGIMEN AT A REDUCED DOSE, SECOND SERIES OF R CHOP
     Route: 065
  2. CYCLOPHOSPHAMIDE [Suspect]
     Active Substance: CYCLOPHOSPHAMIDE
     Indication: Diffuse large B-cell lymphoma
     Dosage: R CHOP REGIMEN AT A REDUCED DOSE, SECOND SERIES OF R CHOP
     Route: 065
  3. VINCRISTINE [Suspect]
     Active Substance: VINCRISTINE
     Indication: Diffuse large B-cell lymphoma
     Dosage: R CHOP REGIMEN AT A REDUCED DOSE, SECOND SERIES OF R CHOP
     Route: 065
  4. PREDNISOLONE [Suspect]
     Active Substance: PREDNISOLONE
     Indication: Diffuse large B-cell lymphoma
     Dosage: R CHOP REGIMEN AT A REDUCED DOSE, SECOND SERIES OF R CHOP
     Route: 065
  5. DOXORUBICIN [Suspect]
     Active Substance: DOXORUBICIN
     Indication: Diffuse large B-cell lymphoma
     Dosage: R CHOP REGIMEN AT A REDUCED DOSE, SECOND SERIES OF R CHOP
     Route: 065

REACTIONS (3)
  - Escherichia bacteraemia [Recovered/Resolved]
  - Strongyloidiasis [Recovered/Resolved]
  - Sepsis [Recovered/Resolved]
